FAERS Safety Report 8182754-4 (Version None)
Quarter: 2012Q1

REPORT INFORMATION
  Report Type: 
  Country: None (occurrence: None)
  Receive Date: 20120305
  Receipt Date: 20120224
  Transmission Date: 20120608
  Serious: Yes (Other)
  Sender: FDA-Public Use
  Company Number: US-BAYER-2011-088235

PATIENT
  Age: 36 Year
  Sex: Female
  Weight: 102 kg

DRUGS (5)
  1. NORVASC [Concomitant]
  2. YASMIN [Suspect]
     Dosage: UNK
     Dates: start: 20050101, end: 20060101
  3. LEVBID [Concomitant]
  4. YAZ [Suspect]
     Dosage: UNK
     Dates: start: 20050101, end: 20060101
  5. PREVACID [Concomitant]

REACTIONS (6)
  - PULMONARY EMBOLISM [None]
  - GALLBLADDER DISORDER [None]
  - DEEP VEIN THROMBOSIS [None]
  - INJURY [None]
  - PAIN [None]
  - CHOLECYSTITIS CHRONIC [None]
